FAERS Safety Report 6270808-9 (Version None)
Quarter: 2009Q3

REPORT INFORMATION
  Report Type: 
  Country: None (occurrence: None)
  Receive Date: 20090709
  Receipt Date: 20090706
  Transmission Date: 20100115
  Serious: Yes (Other)
  Sender: FDA-Public Use
  Company Number: 2009020142

PATIENT
  Sex: Female

DRUGS (2)
  1. HUMATE-P (ANTIHEMOPHILIC FACTOR (HUMAN) VWF, DRIED PASTERRIED KW 07566 [Suspect]
     Indication: PROPHYLAXIS
     Dosage: (INTRVENOUS (NOT OTHERWISE SPECIFIED) )
     Route: 042
     Dates: start: 20090301
  2. HUMATE-P (ANTIHEMOPHILIC FACTOR (HUMAN) VWF, DRIED PASTERRIED KW 07566 [Suspect]
     Indication: VON WILLEBRAND'S DISEASE
     Dosage: (INTRVENOUS (NOT OTHERWISE SPECIFIED) )
     Route: 042
     Dates: start: 20090301

REACTIONS (1)
  - CYTOMEGALOVIRUS INFECTION [None]
